FAERS Safety Report 7073236-1 (Version None)
Quarter: 2010Q4

REPORT INFORMATION
  Report Type: 
  Country: None (occurrence: None)
  Receive Date: 20101029
  Receipt Date: 20100507
  Transmission Date: 20110411
  Serious: No
  Sender: FDA-Public Use
  Company Number: A0859428A

PATIENT
  Age: 54 Year
  Sex: Male

DRUGS (2)
  1. ADVAIR DISKUS 100/50 [Suspect]
     Indication: ASTHMA
     Dosage: 1PUFF SINGLE DOSE
     Route: 055
  2. ALBUTEROL [Concomitant]

REACTIONS (3)
  - DYSPNOEA [None]
  - ENDOTRACHEAL INTUBATION [None]
  - TRACHEAL STENOSIS [None]
